FAERS Safety Report 25900468 (Version 2)
Quarter: 2025Q4

REPORT INFORMATION
  Report Type: Spontaneous
  Country: EU (occurrence: EU)
  Receive Date: 20251009
  Receipt Date: 20251103
  Transmission Date: 20260118
  Serious: Yes (Death, Hospitalization)
  Sender: MYLAN
  Company Number: EU-MYLANLABS-2025M1085392

PATIENT
  Sex: Male
  Weight: 3.6 kg

DRUGS (8)
  1. AMIODARONE [Suspect]
     Active Substance: AMIODARONE
     Indication: Supraventricular tachycardia
     Dosage: 303 MILLIGRAM, CONTINUOUS INFUSION
  2. EVEROLIMUS [Suspect]
     Active Substance: EVEROLIMUS
     Indication: Supraventricular tachycardia
     Dosage: 4.5 MILLIGRAM, BID
  3. Alprostapint [Concomitant]
     Dosage: 170 MICROGRAM
  4. ESMOLOL [Concomitant]
     Active Substance: ESMOLOL HYDROCHLORIDE
     Dosage: 182 MILLIGRAM
  5. Giludop [Concomitant]
     Dosage: 280 MILLIGRAM
  6. Milrinona [Concomitant]
     Dosage: 9.96 MILLIGRAM
  7. NOREPINEPHRINE [Concomitant]
     Active Substance: NOREPINEPHRINE
     Dosage: 6.02 MILLIGRAM
  8. SUPRARENIN [Concomitant]
     Active Substance: EPINEPHRINE
     Dosage: 2.07 MILLIGRAM

REACTIONS (2)
  - Therapy non-responder [Fatal]
  - Off label use [Fatal]
